FAERS Safety Report 8595663-3 (Version None)
Quarter: 2012Q3

REPORT INFORMATION
  Report Type: 
  Country: None (occurrence: None)
  Receive Date: 20120801
  Receipt Date: 20120710
  Transmission Date: 20120928
  Serious: Yes (Life-Threatening)
  Sender: FDA-Public Use
  Company Number: 001300959A

PATIENT
  Age: 52 Year
  Sex: Female

DRUGS (1)
  1. PROACTIV 90 DAY KIT [Suspect]
     Indication: ACNE
     Dosage: ONCE DERMAL
     Dates: start: 20120403

REACTIONS (7)
  - ERYTHEMA [None]
  - PYREXIA [None]
  - EYE SWELLING [None]
  - DYSPNOEA [None]
  - THROAT TIGHTNESS [None]
  - SWELLING FACE [None]
  - MEMORY IMPAIRMENT [None]
